FAERS Safety Report 18935512 (Version 1)
Quarter: 2021Q1

REPORT INFORMATION
  Report Type: Spontaneous
  Country: US (occurrence: US)
  Receive Date: 20210224
  Receipt Date: 20210224
  Transmission Date: 20210420
  Serious: No
  Sender: FDA-Public Use
  Company Number: US-TERSERA THERAPEUTICS LLC-2020TRS000152

PATIENT

DRUGS (3)
  1. PRIALT [Suspect]
     Active Substance: ZICONOTIDE ACETATE
     Indication: SPINAL PAIN
     Dosage: UNK (CONCENTRATION: 21 MCG/ML)
     Route: 037
  2. BUPIVACAINE. [Suspect]
     Active Substance: BUPIVACAINE
     Indication: SPINAL PAIN
     Dosage: UNK
     Route: 065
  3. PRIALT [Suspect]
     Active Substance: ZICONOTIDE ACETATE
     Dosage: UNK (INCREASED TO 16%)
     Route: 037

REACTIONS (4)
  - Mental status changes [Unknown]
  - Off label use [Unknown]
  - Hypoaesthesia [Unknown]
  - Pain [Recovered/Resolved]
